FAERS Safety Report 5520423-7 (Version None)
Quarter: 2007Q4

REPORT INFORMATION
  Report Type: 
  Country: None (occurrence: None)
  Receive Date: 20071114
  Receipt Date: 20071107
  Transmission Date: 20080405
  Serious: Yes (Other)
  Sender: FDA-Public Use
  Company Number: 016793

PATIENT
  Age: 22 Year
  Sex: Female

DRUGS (1)
  1. CLARAVIS [Suspect]
     Dosage: 40 MG,QD,ORAL
     Route: 048
     Dates: start: 20070507, end: 20070607

REACTIONS (2)
  - DRUG EXPOSURE DURING PREGNANCY [None]
  - UNINTENDED PREGNANCY [None]
